FAERS Safety Report 5281656-0 (Version None)
Quarter: 2007Q1

REPORT INFORMATION
  Report Type: 
  Country: None (occurrence: None)
  Receive Date: 20070330
  Receipt Date: 20070322
  Transmission Date: 20070707
  Serious: Yes (Other)
  Sender: FDA-Public Use
  Company Number: GBWYE832501MAR07

PATIENT
  Sex: Male
  Weight: 117 kg

DRUGS (9)
  1. ENBREL [Suspect]
     Indication: PSORIASIS
     Route: 058
     Dates: start: 20060720
  2. ACETAMINOPHEN W/ CODEINE [Concomitant]
     Indication: PAIN
     Dosage: 1 DOSE EVERY 1 PRN
     Route: 048
  3. HUMULIN R [Concomitant]
     Indication: DIABETES MELLITUS
     Dosage: 60 UNIT EVERY 1 DAY
     Route: 058
  4. ATARAX [Concomitant]
     Indication: PSORIASIS
     Dosage: UNKNOWN
     Route: 048
  5. METFORMIN [Concomitant]
     Indication: DIABETES MELLITUS
     Route: 048
  6. FLUOXETINE HCL [Concomitant]
     Indication: DEPRESSION
     Dosage: UNKNOWN
     Route: 048
  7. ROSUVASTATIN [Concomitant]
     Indication: DIABETES MELLITUS
     Dosage: UNKNOWN
     Route: 048
  8. NAPROXEN [Concomitant]
     Indication: ARTHRITIS
     Route: 048
  9. HUMALOG [Concomitant]
     Indication: DIABETES MELLITUS
     Dosage: 24-30 UNITS AS REQUITED
     Route: 058

REACTIONS (1)
  - SKIN NODULE [None]
